FAERS Safety Report 20180119 (Version 1)
Quarter: 2021Q4

REPORT INFORMATION
  Report Type: Spontaneous
  Country: US (occurrence: US)
  Receive Date: 20211214
  Receipt Date: 20211214
  Transmission Date: 20220303
  Serious: No
  Sender: FDA-Public Use
  Company Number: US-STRIDES ARCOLAB LIMITED-2021SP029507

PATIENT
  Age: 52 Year
  Sex: Female

DRUGS (36)
  1. AZATHIOPRINE [Suspect]
     Active Substance: AZATHIOPRINE
     Indication: Musculoskeletal stiffness
     Dosage: UNK
     Route: 065
  2. AZATHIOPRINE [Suspect]
     Active Substance: AZATHIOPRINE
     Indication: Back pain
  3. BACLOFEN [Suspect]
     Active Substance: BACLOFEN
     Indication: Musculoskeletal stiffness
     Dosage: UNK
     Route: 065
  4. BACLOFEN [Suspect]
     Active Substance: BACLOFEN
     Indication: Back pain
  5. GABAPENTIN [Suspect]
     Active Substance: GABAPENTIN
     Indication: Back pain
     Dosage: UNK
     Route: 065
  6. GABAPENTIN [Suspect]
     Active Substance: GABAPENTIN
     Indication: Musculoskeletal stiffness
  7. PREDNISOLONE [Suspect]
     Active Substance: PREDNISOLONE
     Indication: Musculoskeletal stiffness
     Dosage: UNK, LOW DOSE
     Route: 065
  8. PREDNISOLONE [Suspect]
     Active Substance: PREDNISOLONE
     Indication: Back pain
  9. CLONAZEPAM [Suspect]
     Active Substance: CLONAZEPAM
     Indication: Musculoskeletal stiffness
     Dosage: UNK
     Route: 065
  10. CLONAZEPAM [Suspect]
     Active Substance: CLONAZEPAM
     Indication: Back pain
  11. ALPRAZOLAM [Suspect]
     Active Substance: ALPRAZOLAM
     Indication: Musculoskeletal stiffness
     Dosage: UNK
     Route: 065
  12. ALPRAZOLAM [Suspect]
     Active Substance: ALPRAZOLAM
     Indication: Back pain
  13. BENZTROPINE [Suspect]
     Active Substance: BENZTROPINE
     Indication: Musculoskeletal stiffness
     Dosage: UNK
     Route: 065
  14. BENZTROPINE [Suspect]
     Active Substance: BENZTROPINE
     Indication: Back pain
  15. BOTULINUM TOXIN TYPE A [Suspect]
     Active Substance: BOTULINUM TOXIN TYPE A
     Indication: Musculoskeletal stiffness
     Dosage: UNK
     Route: 065
  16. BOTULINUM TOXIN TYPE A [Suspect]
     Active Substance: BOTULINUM TOXIN TYPE A
     Indication: Back pain
  17. BROMOCRIPTINE [Suspect]
     Active Substance: BROMOCRIPTINE
     Indication: Musculoskeletal stiffness
     Dosage: UNK
     Route: 065
  18. BROMOCRIPTINE [Suspect]
     Active Substance: BROMOCRIPTINE
     Indication: Back pain
  19. CARBAMAZEPINE [Suspect]
     Active Substance: CARBAMAZEPINE
     Indication: Musculoskeletal stiffness
     Dosage: UNK
     Route: 065
  20. CARBAMAZEPINE [Suspect]
     Active Substance: CARBAMAZEPINE
     Indication: Back pain
  21. DANTROLENE [Suspect]
     Active Substance: DANTROLENE
     Indication: Musculoskeletal stiffness
     Dosage: UNK
     Route: 065
  22. DANTROLENE [Suspect]
     Active Substance: DANTROLENE
     Indication: Back pain
  23. DIAZEPAM [Suspect]
     Active Substance: DIAZEPAM
     Indication: Musculoskeletal stiffness
     Dosage: UNK
     Route: 065
  24. DIAZEPAM [Suspect]
     Active Substance: DIAZEPAM
     Indication: Back pain
  25. KETAMINE [Suspect]
     Active Substance: KETAMINE
     Indication: Musculoskeletal stiffness
     Dosage: UNK, INFUSION
     Route: 065
  26. KETAMINE [Suspect]
     Active Substance: KETAMINE
     Indication: Back pain
  27. CARBIDOPA\LEVODOPA [Suspect]
     Active Substance: CARBIDOPA\LEVODOPA
     Indication: Musculoskeletal stiffness
     Dosage: UNK
     Route: 065
  28. CARBIDOPA\LEVODOPA [Suspect]
     Active Substance: CARBIDOPA\LEVODOPA
     Indication: Back pain
  29. TIZANIDINE [Suspect]
     Active Substance: TIZANIDINE
     Indication: Musculoskeletal stiffness
     Dosage: UNK
     Route: 065
  30. TIZANIDINE [Suspect]
     Active Substance: TIZANIDINE
     Indication: Back pain
  31. TRIHEXYPHENIDYL [Suspect]
     Active Substance: TRIHEXYPHENIDYL
     Indication: Musculoskeletal stiffness
     Dosage: UNK
     Route: 065
  32. TRIHEXYPHENIDYL [Suspect]
     Active Substance: TRIHEXYPHENIDYL
     Indication: Back pain
  33. ZICONOTIDE [Suspect]
     Active Substance: ZICONOTIDE
     Indication: Musculoskeletal stiffness
     Dosage: UNK
     Route: 037
  34. ZICONOTIDE [Suspect]
     Active Substance: ZICONOTIDE
     Indication: Back pain
  35. OXCARBAZEPINE [Suspect]
     Active Substance: OXCARBAZEPINE
     Indication: Musculoskeletal stiffness
     Dosage: UNK
     Route: 065
  36. OXCARBAZEPINE [Suspect]
     Active Substance: OXCARBAZEPINE
     Indication: Back pain

REACTIONS (1)
  - Drug ineffective for unapproved indication [Unknown]
